FAERS Safety Report 14752261 (Version 3)
Quarter: 2018Q3

REPORT INFORMATION
  Report Type: Spontaneous
  Country: DE (occurrence: DE)
  Receive Date: 20180412
  Receipt Date: 20180703
  Transmission Date: 20181010
  Serious: Yes (Other)
  Sender: FDA-Public Use
  Company Number: DE-PFIZER INC-2018142547

PATIENT
  Age: 29 Year
  Sex: Female

DRUGS (23)
  1. LEVETIRACETAM. [Suspect]
     Active Substance: LEVETIRACETAM
     Indication: STATUS EPILEPTICUS
     Dosage: 4 G, DAILY
     Dates: start: 201612
  2. LEVETIRACETAM. [Suspect]
     Active Substance: LEVETIRACETAM
     Dosage: 8 G, DAILY DOSE
     Dates: start: 20171231, end: 20171231
  3. LEVETIRACETAM. [Suspect]
     Active Substance: LEVETIRACETAM
     Dosage: 12 G, DAILY DOSE
     Dates: start: 20180101, end: 20180101
  4. LACOSAMIDE. [Concomitant]
     Active Substance: LACOSAMIDE
     Dosage: UNK
  5. LAMOTRIGINE. [Concomitant]
     Active Substance: LAMOTRIGINE
     Dosage: UNK
  6. LEVETIRACETAM. [Suspect]
     Active Substance: LEVETIRACETAM
     Dosage: 10 G, DAILY
  7. LEVETIRACETAM. [Suspect]
     Active Substance: LEVETIRACETAM
     Dosage: 8 G, DAILY
  8. TOPIRAMATE. [Concomitant]
     Active Substance: TOPIRAMATE
     Dosage: UNK
  9. MIDAZOLAM [Concomitant]
     Active Substance: MIDAZOLAM HYDROCHLORIDE
     Dosage: UNK
  10. LEVETIRACETAM. [Suspect]
     Active Substance: LEVETIRACETAM
     Dosage: 10 G, DAILY
  11. LEVETIRACETAM. [Suspect]
     Active Substance: LEVETIRACETAM
     Dosage: 10 G, DAILY
  12. CARBAMAZEPINE. [Concomitant]
     Active Substance: CARBAMAZEPINE
     Dosage: UNK
  13. LEVETIRACETAM. [Suspect]
     Active Substance: LEVETIRACETAM
     Dosage: 10 G, DAILY
  14. LEVETIRACETAM. [Suspect]
     Active Substance: LEVETIRACETAM
     Dosage: UNK
     Dates: start: 201612
  15. LEVETIRACETAM. [Suspect]
     Active Substance: LEVETIRACETAM
     Dosage: 10 G, DAILY
  16. LEVETIRACETAM. [Suspect]
     Active Substance: LEVETIRACETAM
     Dosage: 10 G, DAILY DOSE
     Dates: start: 20180102, end: 20180105
  17. LORAZEPAM. [Concomitant]
     Active Substance: LORAZEPAM
     Dosage: UNK
  18. VALPROIC ACID. [Concomitant]
     Active Substance: VALPROIC ACID
     Dosage: UNK
  19. FRISIUM [Concomitant]
     Active Substance: CLOBAZAM
     Dosage: UNK
  20. OXCARBAZEPINE. [Concomitant]
     Active Substance: OXCARBAZEPINE
     Dosage: UNK
  21. LEVETIRACETAM. [Suspect]
     Active Substance: LEVETIRACETAM
     Dosage: 12 G, DAILY
  22. LEVETIRACETAM. [Suspect]
     Active Substance: LEVETIRACETAM
     Dosage: 4 G, DAILY DOSE
     Dates: start: 20171215, end: 201712
  23. ZONISAMIDE. [Concomitant]
     Active Substance: ZONISAMIDE
     Dosage: UNK

REACTIONS (5)
  - Product use issue [Unknown]
  - Generalised tonic-clonic seizure [Unknown]
  - Gestational diabetes [Unknown]
  - Overdose [Recovered/Resolved]
  - Condition aggravated [Unknown]

NARRATIVE: CASE EVENT DATE: 20171215
